FAERS Safety Report 8386545-0 (Version None)
Quarter: 2012Q2

REPORT INFORMATION
  Report Type: 
  Country: None (occurrence: None)
  Receive Date: 20120525
  Receipt Date: 20110620
  Transmission Date: 20120825
  Serious: No
  Sender: FDA-Public Use
  Company Number: US-GLAXOSMITHKLINE-A0932037A

PATIENT
  Age: 72 Year
  Sex: Male

DRUGS (2)
  1. ASTEPRO [Concomitant]
  2. VERAMYST [Suspect]
     Indication: SINUS DISORDER
     Dosage: 2SPR PER DAY
     Route: 045
     Dates: start: 20110315, end: 20110318

REACTIONS (1)
  - HEADACHE [None]
